FAERS Safety Report 14082279 (Version 1)
Quarter: 2017Q4

REPORT INFORMATION
  Report Type: Spontaneous
  Country: US (occurrence: US)
  Receive Date: 20171012
  Receipt Date: 20171012
  Transmission Date: 20180321
  Serious: No
  Sender: FDA-Public Use
  Company Number: US-MYLANLABS-2017M1046749

PATIENT
  Age: 76 Year
  Sex: Female
  Weight: 63 kg

DRUGS (1)
  1. HYDROCHLOROTHIAZIDE. [Suspect]
     Active Substance: HYDROCHLOROTHIAZIDE
     Indication: HYPERCALCAEMIA
     Dosage: 12.5 MG, 2 DAYS
     Dates: start: 20170627

REACTIONS (8)
  - Heart rate irregular [Recovered/Resolved]
  - Cold sweat [Not Recovered/Not Resolved]
  - Fatigue [Unknown]
  - Malaise [Recovering/Resolving]
  - Chest discomfort [Not Recovered/Not Resolved]
  - Heart rate increased [Recovered/Resolved]
  - Asthenia [Unknown]
  - Throat tightness [Not Recovered/Not Resolved]

NARRATIVE: CASE EVENT DATE: 20170627
